FAERS Safety Report 24202249 (Version 1)
Quarter: 2024Q3

REPORT INFORMATION
  Report Type: Spontaneous
  Country: MY (occurrence: MY)
  Receive Date: 20240812
  Receipt Date: 20240812
  Transmission Date: 20241017
  Serious: Yes (Other)
  Sender: NOVARTIS
  Company Number: MY-002147023-NVSC2024MY160159

PATIENT
  Sex: Male

DRUGS (2)
  1. INCLISIRAN [Suspect]
     Active Substance: INCLISIRAN
     Indication: Product used for unknown indication
     Dosage: UNK (FIRST INJECTION)
     Route: 065
     Dates: start: 20231004, end: 20231004
  2. INCLISIRAN [Suspect]
     Active Substance: INCLISIRAN
     Dosage: UNK (SECOND INJECTION)
     Route: 065
     Dates: start: 20240110, end: 20240110

REACTIONS (2)
  - Hepatic enzyme increased [Unknown]
  - Therapy non-responder [Unknown]
